FAERS Safety Report 7047995-8 (Version None)
Quarter: 2010Q4

REPORT INFORMATION
  Report Type: 
  Country: None (occurrence: None)
  Receive Date: 20101015
  Receipt Date: 20101012
  Transmission Date: 20110411
  Serious: Yes (Death, Hospitalization)
  Sender: FDA-Public Use
  Company Number: A0879111A

PATIENT
  Age: 79 Year
  Sex: Male

DRUGS (3)
  1. PROMACTA [Suspect]
     Dosage: 50MG PER DAY
     Route: 048
     Dates: start: 20100315
  2. CORTICOSTEROIDS [Concomitant]
     Dates: start: 20080101
  3. RITUXIMAB [Concomitant]
     Dates: start: 20100121

REACTIONS (3)
  - CARDIAC DISORDER [None]
  - EXPIRED DRUG ADMINISTERED [None]
  - PNEUMONIA [None]
